FAERS Safety Report 8988374 (Version 1)
Quarter: 2012Q4

REPORT INFORMATION
  Report Type: Spontaneous
  Country: US (occurrence: None)
  Receive Date: 20121220
  Receipt Date: 20121220
  Transmission Date: 20130627
  Serious: Yes (Other)
  Sender: FDA-Public Use
  Company Number: None

PATIENT
  Age: 25 Year
  Sex: Female
  Weight: 90 kg

DRUGS (1)
  1. INFLIXIMAB [Suspect]
     Indication: HIDRADENITIS
     Dosage: 300 mg #3 induction dose IV
     Route: 042
     Dates: start: 20121105, end: 20121218

REACTIONS (9)
  - Infusion related reaction [None]
  - Flushing [None]
  - Dyspnoea [None]
  - Nausea [None]
  - Pallor [None]
  - Hypotonia [None]
  - Unresponsive to stimuli [None]
  - Respiratory arrest [None]
  - Hypotension [None]
